FAERS Safety Report 9234913 (Version 2)
Quarter: 2019Q1

REPORT INFORMATION
  Report Type: Spontaneous
  Country: IT (occurrence: IT)
  Receive Date: 20130416
  Receipt Date: 20190312
  Transmission Date: 20190418
  Serious: Yes (Hospitalization)
  Sender: FDA-Public Use
  Company Number: IT-MYLANLABS-2013S1007356

PATIENT
  Sex: Female
  Weight: 70 kg

DRUGS (13)
  1. LEVOFLOXACIN. [Interacting]
     Active Substance: LEVOFLOXACIN
     Indication: ENTEROBACTER TEST POSITIVE
  2. OMEPRAZOLO [Concomitant]
     Active Substance: OMEPRAZOLE
     Dosage: UNK
     Dates: start: 20130306, end: 20130324
  3. RIFADIN [Interacting]
     Active Substance: RIFAMPIN
     Indication: ENTEROBACTER TEST POSITIVE
     Dosage: 2 DF,QD
     Route: 042
     Dates: start: 20130301, end: 20130327
  4. VANCOMYCIN [Suspect]
     Active Substance: VANCOMYCIN
     Indication: ENTEROBACTER TEST POSITIVE
     Dosage: 2 G,QD
     Route: 042
     Dates: start: 20130301, end: 20130326
  5. LEVOFLOXACIN. [Interacting]
     Active Substance: LEVOFLOXACIN
     Indication: ENTEROCOCCAL INFECTION
     Dosage: 750 MG,QD
     Route: 042
     Dates: start: 20130301, end: 20130326
  6. RIFADIN [Interacting]
     Active Substance: RIFAMPIN
     Indication: ENTEROCOCCAL INFECTION
     Dosage: 2 DF,QD
     Dates: start: 20130301, end: 20130326
  7. LEDERFOLIN [Concomitant]
     Active Substance: LEUCOVORIN CALCIUM
     Dosage: 7.5 MILLIGRAM
     Dates: start: 20130325
  8. TRAMADOL                           /00599202/ [Concomitant]
     Active Substance: TRAMADOL
     Dosage: 1 DOSAGE FORM
     Dates: start: 20130306, end: 20130324
  9. LYRICA [Concomitant]
     Active Substance: PREGABALIN
     Dosage: 1 DOSAGE FORM
     Route: 048
     Dates: start: 20130306, end: 20130324
  10. TACHIPIRINA [Concomitant]
     Active Substance: ACETAMINOPHEN
     Dosage: 2 GRAM
     Dates: start: 20130325
  11. LYRICA [Concomitant]
     Active Substance: PREGABALIN
     Dosage: 1 DOSAGE FORM
     Route: 048
     Dates: start: 20130306, end: 20130326
  12. ENOXAPARINA [Concomitant]
     Active Substance: ENOXAPARIN
     Dosage: 4 KILO-INTERNATIONAL UNIT
     Dates: start: 20130306, end: 20130324
  13. PANTORC [Concomitant]
     Active Substance: PANTOPRAZOLE SODIUM
     Dosage: 40 MILLIGRAM
     Dates: start: 20130325

REACTIONS (5)
  - Drug hypersensitivity [Recovering/Resolving]
  - Urticaria [Recovering/Resolving]
  - Erythema multiforme [Recovering/Resolving]
  - Drug interaction [Recovering/Resolving]
  - Laryngeal oedema [Recovering/Resolving]

NARRATIVE: CASE EVENT DATE: 20130326
